FAERS Safety Report 20269177 (Version 4)
Quarter: 2022Q1

REPORT INFORMATION
  Report Type: Spontaneous
  Country: PL (occurrence: None)
  Receive Date: 20220101
  Receipt Date: 20220112
  Transmission Date: 20220423
  Serious: Yes (Death)
  Sender: FDA-Public Use
  Company Number: PL-ROCHE-2984673

PATIENT
  Age: 66 Year
  Sex: Male
  Weight: 90 kg

DRUGS (5)
  1. OCREVUS [Suspect]
     Active Substance: OCRELIZUMAB
     Indication: Primary progressive multiple sclerosis
     Dosage: RECEIVED APPROXIMATELY 4 DOSES OF THE DRUG
     Route: 042
     Dates: start: 20210709, end: 20210721
  2. COVID-19 VACCINE [Concomitant]
     Dates: start: 20210518
  3. COVID-19 VACCINE [Concomitant]
     Dates: start: 20210609
  4. MITOXANTRONE [Concomitant]
     Active Substance: MITOXANTRONE HYDROCHLORIDE
     Indication: Multiple sclerosis
     Route: 042
     Dates: start: 201606, end: 201903
  5. TIZANIDINE [Concomitant]
     Active Substance: TIZANIDINE
     Indication: Muscle spasticity
     Dates: start: 2016, end: 202112

REACTIONS (1)
  - COVID-19 [Fatal]

NARRATIVE: CASE EVENT DATE: 20211101
